FAERS Safety Report 16034243 (Version 3)
Quarter: 2019Q2

REPORT INFORMATION
  Report Type: Spontaneous
  Country: US (occurrence: US)
  Receive Date: 20190305
  Receipt Date: 20190521
  Transmission Date: 20190711
  Serious: Yes (Death, Hospitalization, Other)
  Sender: FDA-Public Use
  Company Number: US-GLAXOSMITHKLINE-US2019GSK038935

PATIENT
  Sex: Male

DRUGS (1)
  1. ADVAIR DISKUS [Suspect]
     Active Substance: FLUTICASONE PROPIONATE\SALMETEROL XINAFOATE
     Indication: PRODUCT USED FOR UNKNOWN INDICATION
     Dosage: UNK
     Route: 055
     Dates: start: 2017

REACTIONS (9)
  - Cardiac arrest [Unknown]
  - Upper limb fracture [Unknown]
  - Oxygen saturation decreased [Not Recovered/Not Resolved]
  - Death [Fatal]
  - Limb operation [Unknown]
  - Fall [Unknown]
  - Pain in extremity [Unknown]
  - Skin discolouration [Unknown]
  - Dyspnoea [Unknown]
